FAERS Safety Report 10674211 (Version 10)
Quarter: 2015Q3

REPORT INFORMATION
  Report Type: Spontaneous
  Country: US (occurrence: US)
  Receive Date: 20141224
  Receipt Date: 20150923
  Transmission Date: 20151125
  Serious: Yes (Other)
  Sender: FDA-Public Use
  Company Number: US-PFIZER INC-2014345420

PATIENT
  Age: 73 Year
  Sex: Female

DRUGS (9)
  1. LYRICA [Suspect]
     Active Substance: PREGABALIN
     Indication: NEUROPATHY PERIPHERAL
     Dosage: 75 MG, 2X/DAY
     Route: 048
     Dates: start: 2012
  2. NAPROSYN [Concomitant]
     Active Substance: NAPROXEN
     Dosage: 500 MG, 2X/DAY
     Route: 048
  3. NAPROXEN. [Concomitant]
     Active Substance: NAPROXEN
     Indication: NEUROPATHY PERIPHERAL
     Dosage: 500 MG, 2X/DAY AS NEEDED
     Dates: start: 201201
  4. TOPAMAX [Suspect]
     Active Substance: TOPIRAMATE
     Dosage: UNK
     Dates: start: 20140502, end: 201405
  5. VITAMIN D [Concomitant]
     Active Substance: CHOLECALCIFEROL
     Dosage: UNK
  6. VITAMIN C [Concomitant]
     Active Substance: ASCORBIC ACID
     Dosage: UNK
  7. TOPAMAX [Suspect]
     Active Substance: TOPIRAMATE
     Indication: NEUROPATHY PERIPHERAL
     Dosage: 25 MG, 1X/DAY
     Route: 048
     Dates: start: 20140326, end: 201405
  8. TOPAMAX [Suspect]
     Active Substance: TOPIRAMATE
     Dosage: UNK
     Dates: start: 20140326
  9. CENTRUM [Concomitant]
     Active Substance: VITAMINS
     Dosage: UNK

REACTIONS (20)
  - Weight increased [Recovered/Resolved]
  - Nausea [Recovered/Resolved]
  - Balance disorder [Recovered/Resolved]
  - Dysuria [Recovered/Resolved]
  - Dry eye [Not Recovered/Not Resolved]
  - Depression [Recovered/Resolved]
  - Malaise [Recovered/Resolved]
  - Eye discharge [Not Recovered/Not Resolved]
  - Nasal congestion [Recovered/Resolved]
  - Diabetes mellitus [Not Recovered/Not Resolved]
  - Vision blurred [Not Recovered/Not Resolved]
  - Tinnitus [Not Recovered/Not Resolved]
  - Burning sensation [Not Recovered/Not Resolved]
  - Decreased appetite [Recovered/Resolved]
  - Urinary retention [Recovered/Resolved]
  - Paraesthesia [Not Recovered/Not Resolved]
  - Neuropathy peripheral [Not Recovered/Not Resolved]
  - Dizziness [Recovered/Resolved]
  - Disease progression [Unknown]
  - Headache [Recovered/Resolved]

NARRATIVE: CASE EVENT DATE: 201203
